FAERS Safety Report 5301923-1 (Version None)
Quarter: 2007Q2

REPORT INFORMATION
  Report Type: 
  Country: None (occurrence: None)
  Receive Date: 20070416
  Receipt Date: 20070416
  Transmission Date: 20071010
  Serious: Yes (Other)
  Sender: FDA-Public Use
  Company Number: None

PATIENT
  Age: 24 Year
  Sex: Male
  Weight: 113.3993 kg

DRUGS (3)
  1. RISPERIDONE [Suspect]
     Indication: SCHIZOPHRENIA
     Dosage: 4MG BID PO
     Route: 048
  2. DIVALPROEX SODIUM [Concomitant]
  3. CLONAZEPAM [Concomitant]

REACTIONS (3)
  - DIABETES MELLITUS [None]
  - TREATMENT NONCOMPLIANCE [None]
  - WEIGHT INCREASED [None]
